FAERS Safety Report 20325561 (Version 1)
Quarter: 2022Q1

REPORT INFORMATION
  Report Type: Report from Study
  Country: NO (occurrence: NO)
  Receive Date: 20220112
  Receipt Date: 20220112
  Transmission Date: 20220423
  Serious: Yes (Hospitalization)
  Sender: FDA-Public Use
  Company Number: NO-ABBVIE-22K-122-4228188-00

PATIENT
  Age: 52 Year
  Sex: Female

DRUGS (3)
  1. CARBIDOPA\LEVODOPA [Suspect]
     Active Substance: CARBIDOPA\LEVODOPA
     Indication: Product used for unknown indication
     Route: 050
     Dates: start: 202104, end: 2021
  2. CARBIDOPA\LEVODOPA [Suspect]
     Active Substance: CARBIDOPA\LEVODOPA
     Dosage: 24 HOURS TREATMENT
     Route: 050
     Dates: start: 202109
  3. CARBIDOPA\LEVODOPA [Suspect]
     Active Substance: CARBIDOPA\LEVODOPA
     Dosage: CONTINOUS DOSE DECREASED AT NIGHT
     Route: 050

REACTIONS (7)
  - Burning sensation [Unknown]
  - Urinary tract infection [Unknown]
  - Pain [Unknown]
  - On and off phenomenon [Unknown]
  - Freezing phenomenon [Unknown]
  - Anxiety [Unknown]
  - Overdose [Unknown]

NARRATIVE: CASE EVENT DATE: 20210101
